FAERS Safety Report 4295478-0 (Version None)
Quarter: 2004Q1

REPORT INFORMATION
  Report Type: 
  Country: None (occurrence: None)
  Receive Date: 20040212
  Receipt Date: 20040130
  Transmission Date: 20041129
  Serious: Yes (Life-Threatening, Hospitalization)
  Sender: FDA-Public Use
  Company Number: 200410046BCC

PATIENT
  Age: 57 Year
  Sex: Male
  Weight: 131.5431 kg

DRUGS (2)
  1. ALEVE [Suspect]
     Indication: NASOPHARYNGITIS
     Dosage: 220 MG, ONCE, ORAL
     Route: 048
     Dates: start: 20031222
  2. ALEVE [Suspect]
     Indication: PHARYNGOLARYNGEAL PAIN
     Dosage: 220 MG, ONCE, ORAL
     Route: 048
     Dates: start: 20031222

REACTIONS (3)
  - ANAPHYLACTIC SHOCK [None]
  - COUGH [None]
  - FATIGUE [None]
